FAERS Safety Report 14937632 (Version 4)
Quarter: 2019Q2

REPORT INFORMATION
  Report Type: Spontaneous
  Country: DE (occurrence: DE)
  Receive Date: 20180525
  Receipt Date: 20190509
  Transmission Date: 20190711
  Serious: Yes (Hospitalization, Other)
  Sender: FDA-Public Use
  Company Number: PHHY2018DE006936

PATIENT
  Age: 52 Year
  Sex: Female
  Weight: 83 kg

DRUGS (19)
  1. BEVACIZUMAB. [Suspect]
     Active Substance: BEVACIZUMAB
     Indication: BREAST CANCER
     Dosage: 1245 MG, UNK
     Route: 042
  2. DEXAMETHASON [Concomitant]
     Active Substance: DEXAMETHASONE
     Dosage: UNK
     Route: 042
     Dates: start: 20101025
  3. PACLITAXEL. [Suspect]
     Active Substance: PACLITAXEL
     Dosage: 175 MG/M2, Q3W
     Route: 042
     Dates: start: 20101004
  4. PACLITAXEL. [Suspect]
     Active Substance: PACLITAXEL
     Dosage: 175 MG/M2, Q3W
     Route: 042
     Dates: start: 20101025
  5. PACLITAXEL. [Suspect]
     Active Substance: PACLITAXEL
     Dosage: 175 MG/M2, Q3W
     Route: 042
     Dates: start: 20101115
  6. DEXAMETHASON [Concomitant]
     Active Substance: DEXAMETHASONE
     Dosage: LAST ADMINISTRATION PRIOR TO THE EVENT ON 25 OCT 2010
     Route: 042
  7. BEVACIZUMAB. [Suspect]
     Active Substance: BEVACIZUMAB
     Dosage: ON 06/DEC/2010 AND 25/JUL/2011, PATIENT RECEIVED 1200MG OF BEVACIZUMAB
     Route: 042
     Dates: start: 20110725
  8. BEVACIZUMAB. [Suspect]
     Active Substance: BEVACIZUMAB
     Dosage: LAST DOSE OF BEVACIZUMAB PRIOR TO SAE 1245 MG
     Route: 042
  9. SEVIKAR [Concomitant]
     Active Substance: AMLODIPINE BESYLATE\OLMESARTAN MEDOXOMIL
     Indication: PRODUCT USED FOR UNKNOWN INDICATION
     Dosage: UNK UNK, QD
     Route: 048
     Dates: start: 20101208
  10. PACLITAXEL. [Suspect]
     Active Substance: PACLITAXEL
     Indication: BREAST CANCER
     Dosage: 175 MG/M2, Q3W
     Route: 042
     Dates: start: 20100313
  11. BEVACIZUMAB. [Suspect]
     Active Substance: BEVACIZUMAB
     Dosage: 1200 MG, UNK
     Route: 042
     Dates: start: 20101206
  12. FENISTIL [Concomitant]
     Active Substance: DIMETHINDENE
     Indication: BREAST CANCER METASTATIC
     Dosage: LAST ADMINISTRATION PRIOR TO THE EVENT ON 25 OCT 2010
     Route: 042
  13. PACLITAXEL. [Suspect]
     Active Substance: PACLITAXEL
     Dosage: 175 MG/M2, Q3W
     Route: 042
     Dates: start: 20100913
  14. PACLITAXEL. [Suspect]
     Active Substance: PACLITAXEL
     Dosage: 175 MG/M2, Q3W
     Route: 042
     Dates: start: 20101206
  15. SEVIKAR [Concomitant]
     Active Substance: AMLODIPINE BESYLATE\OLMESARTAN MEDOXOMIL
     Dosage: 1 DF, UNK
     Route: 048
     Dates: start: 20101208
  16. DEXAMETHASON [Concomitant]
     Active Substance: DEXAMETHASONE
     Indication: BREAST CANCER
     Dosage: UNK
     Route: 042
  17. ZOFRAN [Concomitant]
     Active Substance: ONDANSETRON HYDROCHLORIDE
     Dosage: UNK
     Route: 042
     Dates: start: 20101025
  18. ZOFRAN [Concomitant]
     Active Substance: ONDANSETRON HYDROCHLORIDE
     Indication: BREAST CANCER METASTATIC
     Dosage: UNK
     Route: 042
  19. H2 BLOCKER [Concomitant]
     Indication: BREAST CANCER METASTATIC
     Dosage: LAST ADMINISTRATION PRIOR TO THE EVENT ON 25 OCT 2010
     Route: 042

REACTIONS (22)
  - Hypertension [Recovered/Resolved]
  - Dyspnoea [Recovered/Resolved]
  - Fatigue [Recovered/Resolved]
  - Duodenal ulcer [Recovered/Resolved]
  - Polyneuropathy [Recovered/Resolved]
  - Alopecia [Recovered/Resolved]
  - General physical health deterioration [Recovered/Resolved]
  - Pyrexia [Recovered/Resolved]
  - Hot flush [Recovered/Resolved]
  - Chills [Recovered/Resolved]
  - Taste disorder [Recovered/Resolved]
  - Decreased appetite [Recovered/Resolved]
  - Pain [Unknown]
  - Circulatory collapse [Recovered/Resolved]
  - Leukopenia [Recovered/Resolved]
  - Arthralgia [Recovered/Resolved]
  - Bone pain [Recovered/Resolved]
  - Incontinence [Recovered/Resolved]
  - Musculoskeletal pain [Recovered/Resolved]
  - Vaginal infection [Recovered/Resolved]
  - Pyrexia [Recovered/Resolved]
  - Peripheral sensory neuropathy [Recovered/Resolved]

NARRATIVE: CASE EVENT DATE: 20100917
